FAERS Safety Report 25932800 (Version 1)
Quarter: 2025Q4

REPORT INFORMATION
  Report Type: Report from Study
  Country: US (occurrence: US)
  Receive Date: 20251017
  Receipt Date: 20251017
  Transmission Date: 20260119
  Serious: Yes (Other)
  Sender: EMD SERONO INC
  Company Number: US-Merck Healthcare KGaA-2025051350

PATIENT
  Age: 53 Year
  Sex: Female

DRUGS (3)
  1. REBIF [Suspect]
     Active Substance: INTERFERON BETA-1A
     Indication: Multiple sclerosis
     Dosage: WEEK 1 AND 2
     Dates: start: 20240912
  2. REBIF [Suspect]
     Active Substance: INTERFERON BETA-1A
     Dosage: WEEK 3 AND 4
     Dates: start: 202409
  3. REBIF [Suspect]
     Active Substance: INTERFERON BETA-1A
     Dosage: WEEK 5

REACTIONS (2)
  - Loss of consciousness [Unknown]
  - Asthenia [Unknown]
